FAERS Safety Report 10192800 (Version 1)
Quarter: 2014Q2

REPORT INFORMATION
  Report Type: Spontaneous
  Country: GB (occurrence: GB)
  Receive Date: 20140523
  Receipt Date: 20140523
  Transmission Date: 20141212
  Serious: Yes (Disabling)
  Sender: FDA-Public Use
  Company Number: PHHY2014GB061632

PATIENT
  Sex: Male

DRUGS (3)
  1. AZITHROMYCIN [Suspect]
  2. PREDNISOLONE [Suspect]
     Dosage: 40 MG, FOR 2 DAYS
  3. PREDNISOLONE TEVA [Suspect]
     Dosage: 20 MILLIGRAM DAILY; WAS PRESCRIBED TO TAKE FOR 5 DAYS BUT ONLY TAKEN FOR TWO DAYS
     Dates: start: 201306

REACTIONS (6)
  - Muscular weakness [Unknown]
  - Cough [Unknown]
  - Diarrhoea [Unknown]
  - Abdominal discomfort [Unknown]
  - Vomiting [Unknown]
  - Malaise [None]
